FAERS Safety Report 25521664 (Version 2)
Quarter: 2025Q3

REPORT INFORMATION
  Report Type: Other
  Country: US (occurrence: US)
  Receive Date: 20250706
  Receipt Date: 20250917
  Transmission Date: 20251020
  Serious: No
  Sender: TRAVERE THERAPEUTICS
  Company Number: US-TRAVERE-2025TVT00965

PATIENT
  Sex: Male

DRUGS (1)
  1. FILSPARI [Suspect]
     Active Substance: SPARSENTAN
     Indication: Haematuria
     Route: 048
     Dates: start: 20250528

REACTIONS (5)
  - Muscle fatigue [Unknown]
  - Fatigue [Unknown]
  - Urine abnormality [None]
  - Product use in unapproved indication [Unknown]
  - Throat irritation [Unknown]
